FAERS Safety Report 18712483 (Version 3)
Quarter: 2021Q1

REPORT INFORMATION
  Report Type: Spontaneous
  Country: JP (occurrence: JP)
  Receive Date: 20210107
  Receipt Date: 20210224
  Transmission Date: 20210419
  Serious: Yes (Death, Life-Threatening)
  Sender: FDA-Public Use
  Company Number: NVSC2021JP002681

PATIENT
  Age: 88 Year
  Sex: Female

DRUGS (1)
  1. RECLAST [Suspect]
     Active Substance: ZOLEDRONIC ACID
     Indication: OSTEOPOROSIS
     Dosage: 5 MG, EVERY 52 WEEKS (ONE DAY)
     Route: 041
     Dates: start: 20201125, end: 20201125

REACTIONS (3)
  - Glossoptosis [Fatal]
  - Somnolence [Fatal]
  - Dysphagia [Fatal]

NARRATIVE: CASE EVENT DATE: 20201126
